FAERS Safety Report 7222134-9 (Version None)
Quarter: 2011Q1

REPORT INFORMATION
  Report Type: 
  Country: None (occurrence: None)
  Receive Date: 20110104
  Receipt Date: 20101220
  Transmission Date: 20110831
  Serious: Yes (Other)
  Sender: FDA-Public Use
  Company Number: 1000017901

PATIENT
  Age: 83 Year
  Sex: Female

DRUGS (6)
  1. ATHYMIL (MIANSERIN HYDROCHLORIDE) (MIANSERIN HYDROCHLORIDE) [Concomitant]
  2. CITALOPRAM HYDROBROMIDE [Suspect]
     Indication: DEPRESSION
     Dosage: 20 MG (20 MG, 1 IN 1 D), ORAL; 10 MG (10 MG, 1 IN 1 D), ORAL
     Route: 048
  3. CITALOPRAM HYDROBROMIDE [Suspect]
     Indication: DEPRESSION
     Dosage: 20 MG (20 MG, 1 IN 1 D), ORAL; 10 MG (10 MG, 1 IN 1 D), ORAL
     Route: 048
  4. EBIXA (MEMANTINE HYDROCHLORIDE) (TABLETS) (MEMANTINE HYDROCHLORIDE) [Concomitant]
  5. LEVOTHYROXINE SODIUM [Concomitant]
  6. XANAX [Concomitant]

REACTIONS (1)
  - SPINAL FRACTURE [None]
